FAERS Safety Report 8153544-3 (Version None)
Quarter: 2012Q1

REPORT INFORMATION
  Report Type: 
  Country: None (occurrence: None)
  Receive Date: 20120216
  Receipt Date: 20120216
  Transmission Date: 20120608
  Serious: Yes (Hospitalization)
  Sender: FDA-Public Use
  Company Number: None

PATIENT
  Age: 25 Year
  Sex: Female
  Weight: 81.8 kg

DRUGS (1)
  1. NORGESTIMATE AND ETHINYL ESTRADIOL [Suspect]
     Indication: ORAL CONTRACEPTION
     Dosage: 1 TAB EVERY DAY PO
     Route: 048
     Dates: start: 20100602, end: 20111223

REACTIONS (8)
  - PAIN IN EXTREMITY [None]
  - OEDEMA PERIPHERAL [None]
  - ERYTHEMA [None]
  - VARICOSE VEINS PELVIC [None]
  - DEEP VEIN THROMBOSIS [None]
  - MOBILITY DECREASED [None]
  - FEELING HOT [None]
  - PELVIC MASS [None]
